FAERS Safety Report 11788663 (Version 1)
Quarter: 2015Q4

REPORT INFORMATION
  Report Type: Spontaneous
  Country: JP (occurrence: JP)
  Receive Date: 20151201
  Receipt Date: 20151201
  Transmission Date: 20160305
  Serious: Yes (Other)
  Sender: FDA-Public Use
  Company Number: JP-ROCHE-1670786

PATIENT
  Age: 64 Year
  Sex: Female
  Weight: 43 kg

DRUGS (7)
  1. RANMARK [Concomitant]
     Active Substance: DENOSUMAB
     Dosage: SPLIT NUMBER OF DOSES WAS UNKNOWN.
     Route: 065
     Dates: start: 20141126
  2. HIRUDOID OINTMENT [Concomitant]
     Dosage: SPLIT NUMBER OF DOSES WAS UNKNOWN.
     Route: 003
     Dates: start: 20150604
  3. AZUNOL GARGLE [Concomitant]
     Dosage: SUITABLY
     Route: 049
     Dates: start: 201412
  4. XELODA [Suspect]
     Active Substance: CAPECITABINE
     Indication: BREAST CANCER
     Dosage: SPLIT NUMBER OF DOSES WAS UNKNOWN.
     Route: 048
     Dates: start: 20150604, end: 20150730
  5. PYDOXAL [Concomitant]
     Active Substance: PYRIDOXAL
     Dosage: SPLIT NUMBER OF DOSES WAS UNKNOWN.
     Route: 048
     Dates: start: 20150604
  6. ARIMIDEX [Concomitant]
     Active Substance: ANASTROZOLE
     Dosage: SPLIT NUMBER OF DOSES WAS UNKNOWN.
     Route: 065
     Dates: start: 20150604
  7. EDIROL [Suspect]
     Active Substance: ELDECALCITOL
     Indication: OSTEOPOROSIS
     Route: 048
     Dates: start: 201505, end: 20150807

REACTIONS (2)
  - Renal disorder [Recovered/Resolved]
  - Hypercalcaemia [Recovered/Resolved]

NARRATIVE: CASE EVENT DATE: 20150730
